FAERS Safety Report 15116782 (Version 2)
Quarter: 2018Q3

REPORT INFORMATION
  Report Type: Spontaneous
  Country: RU (occurrence: RU)
  Receive Date: 20180706
  Receipt Date: 20180720
  Transmission Date: 20181010
  Serious: Yes (Other)
  Sender: FDA-Public Use
  Company Number: RU-TELIGENT, INC-IGIL20180366

PATIENT
  Age: 45 Year

DRUGS (10)
  1. BALANCED SALT SOLUTION [Concomitant]
     Active Substance: CALCIUM CHLORIDE\MAGNESIUM CHLORIDE\POTASSIUM CHLORIDE\SODIUM ACETATE\SODIUM CHLORIDE\SODIUM CITRATE
     Indication: EYE IRRIGATION
     Dosage: UNKNOWN
     Route: 047
  2. CEFUROXIME SODIUM. [Suspect]
     Active Substance: CEFUROXIME SODIUM
     Indication: PRODUCT USED FOR UNKNOWN INDICATION
     Dosage: 0.1 ML
  3. ATROPINE SULPHATE [Concomitant]
     Active Substance: ATROPINE SULFATE
     Indication: MYDRIASIS
     Dosage: 0.2 ML
     Route: 057
  4. POVIDONE?IODINE. [Concomitant]
     Active Substance: POVIDONE-IODINE
     Dosage: UNKNOWN
  5. LIDOCAINE. [Concomitant]
     Active Substance: LIDOCAINE
     Indication: LOCAL ANAESTHESIA
     Dosage: 1.5 ML
  6. MEZATONE [Concomitant]
     Indication: MYDRIASIS
     Dosage: 0.2 ML
     Route: 057
  7. PROVISC [Concomitant]
     Active Substance: HYALURONATE SODIUM
     Indication: PRODUCT USED FOR UNKNOWN INDICATION
     Dosage: UNKNOWN
     Route: 065
  8. POVIDONE?IODINE. [Concomitant]
     Active Substance: POVIDONE-IODINE
     Indication: PRODUCT USED FOR UNKNOWN INDICATION
     Dosage: UNKNOWN
     Route: 061
  9. ALCAINE [Concomitant]
     Active Substance: PROPARACAINE HYDROCHLORIDE
     Indication: LOCAL ANAESTHESIA
     Dosage: UNKNOWN
  10. VISCOAT [Concomitant]
     Indication: PRODUCT USED FOR UNKNOWN INDICATION

REACTIONS (8)
  - Detachment of retinal pigment epithelium [Recovered/Resolved]
  - Visual impairment [Recovered/Resolved]
  - Retinal disorder [Recovered/Resolved]
  - Detachment of macular retinal pigment epithelium [Recovered/Resolved]
  - Chorioretinopathy [Recovered/Resolved]
  - Visual acuity reduced [Recovered/Resolved]
  - Incorrect route of drug administration [None]
  - Retinal disorder [Not Recovered/Not Resolved]
